FAERS Safety Report 8747184 (Version 4)
Quarter: 2013Q1

REPORT INFORMATION
  Report Type: Spontaneous
  Country: US (occurrence: US)
  Receive Date: 20120827
  Receipt Date: 20121031
  Transmission Date: 20140127
  Serious: Yes (Other)
  Sender: FDA-Public Use
  Company Number: US-JNJFOC-20120810783

PATIENT
  Age: 26 None
  Sex: Female
  Weight: 77.11 kg

DRUGS (1)
  1. LISTERINE MOUTHWASH ORIGINAL [Suspect]
     Indication: DENTAL DISORDER PROPHYLAXIS
     Dosage: HALF OF A MOUTHFUL
     Route: 048
     Dates: start: 19820601, end: 19820601

REACTIONS (5)
  - Loss of consciousness [Recovered/Resolved]
  - Accidental exposure to product [Unknown]
  - Dyspnoea [Recovered/Resolved]
  - Exophthalmos [Recovered/Resolved]
  - Expired drug administered [Unknown]
